FAERS Safety Report 8746578 (Version 2)
Quarter: 2012Q4

REPORT INFORMATION
  Report Type: 
  Country: NL (occurrence: NL)
  Receive Date: 20120827
  Receipt Date: 20121119
  Transmission Date: 20130627
  Serious: Yes (Hospitalization)
  Sender: FDA-Public Use
  Company Number: NL-PFIZER INC-2012204585

PATIENT
  Age: 52 Year
  Sex: Female
  Weight: 66.8 kg

DRUGS (8)
  1. GENOTROPIN [Suspect]
     Dosage: 0.3 mg, 7/wk
     Route: 058
     Dates: start: 20040318
  2. FLUDROCORTISONE [Concomitant]
     Dosage: UNK
     Dates: start: 19890101
  3. ESTRADIOL [Concomitant]
     Dosage: UNK
     Dates: start: 19981208
  4. HYDROCORTISONE [Concomitant]
     Indication: ADRENAL INSUFFICIENCY
     Dosage: UNK
     Dates: start: 19990325
  5. CALCICHEW [Concomitant]
     Indication: HYPOCALCEMIA
     Dosage: UNK
     Dates: start: 20001004
  6. DHEA [Concomitant]
     Dosage: UNK
     Dates: start: 20011004
  7. EUTHYROX [Concomitant]
     Indication: BLOOD THYROID STIMULATING HORMONE DECREASED
     Dosage: UNK
     Dates: start: 19981208
  8. EUTHYROX [Concomitant]
     Indication: PRIMARY HYPOTHYROIDISM

REACTIONS (2)
  - Adrenocortical insufficiency acute [Recovered/Resolved]
  - Gastroenteritis [Recovered/Resolved]
